FAERS Safety Report 8204278-8 (Version None)
Quarter: 2012Q1

REPORT INFORMATION
  Report Type: 
  Country: None (occurrence: None)
  Receive Date: 20120313
  Receipt Date: 20120302
  Transmission Date: 20120608
  Serious: Yes (Other)
  Sender: FDA-Public Use
  Company Number: US-CELGENEUS-163-21880-12021304

PATIENT
  Sex: Male
  Weight: 154.36 kg

DRUGS (13)
  1. REVLIMID [Suspect]
     Dosage: 5 MILLIGRAM
     Route: 048
     Dates: start: 20111101, end: 20120101
  2. HYDROCODONE BITARTRATE AND ACETAMINOPHEN [Concomitant]
     Dosage: 7.5-500MG
     Route: 048
  3. MELPHALAN HYDROCHLORIDE [Suspect]
     Dates: end: 20111121
  4. FILGRASTIM [Concomitant]
     Dosage: 480 MICROGRAM
     Route: 065
     Dates: start: 20111128
  5. REVLIMID [Suspect]
     Indication: MULTIPLE MYELOMA
     Dosage: 15 MILLIGRAM
     Route: 048
     Dates: start: 20110408
  6. MELPHALAN HYDROCHLORIDE [Suspect]
     Route: 065
     Dates: start: 20110408
  7. METOCLOPRAMIDE [Concomitant]
     Dosage: 10 MILLIGRAM
     Route: 048
  8. REVLIMID [Suspect]
     Dosage: 10 MILLIGRAM
     Route: 048
     Dates: start: 20110701
  9. PRED [Concomitant]
     Dosage: 200
     Route: 065
     Dates: start: 20110408
  10. WARFARIN SODIUM [Concomitant]
     Indication: PROPHYLAXIS
     Dosage: 1 MILLIGRAM
     Route: 048
  11. ASPIRIN [Concomitant]
     Indication: PROPHYLAXIS
     Dosage: 81 MILLIGRAM
     Route: 048
  12. ATENOLOL [Concomitant]
     Indication: BLOOD PRESSURE
     Dosage: 50 MILLIGRAM
     Route: 048
  13. ZOLPIDEM [Concomitant]
     Dosage: 10 MILLIGRAM
     Route: 048

REACTIONS (4)
  - SQUAMOUS CELL CARCINOMA OF SKIN [None]
  - BASAL CELL CARCINOMA [None]
  - WHITE BLOOD CELL COUNT DECREASED [None]
  - THROMBOCYTOPENIA [None]
